FAERS Safety Report 24658778 (Version 1)
Quarter: 2024Q4

REPORT INFORMATION
  Report Type: Spontaneous
  Country: US (occurrence: None)
  Receive Date: 20241122
  Receipt Date: 20241122
  Transmission Date: 20250115
  Serious: Yes (Death)
  Sender: Public
  Company Number: None

PATIENT
  Age: 71 Year
  Sex: Male

DRUGS (1)
  1. COLLAGENASE SANTYL [Suspect]
     Active Substance: COLLAGENASE CLOSTRIDIUM HISTOLYTICUM
     Dosage: APPLY TOPICALLY TO WOUND ONCE A DAY (OR MORE FREQUENTLY IF THE DRESSING BECOMES SOILED)?
     Route: 061
     Dates: start: 20230817, end: 20241117

REACTIONS (1)
  - Death [None]

NARRATIVE: CASE EVENT DATE: 20241117
